FAERS Safety Report 4915947-7 (Version None)
Quarter: 2006Q1

REPORT INFORMATION
  Report Type: 
  Country: None (occurrence: None)
  Receive Date: 20060214
  Receipt Date: 20060126
  Transmission Date: 20060701
  Serious: Yes (Hospitalization)
  Sender: FDA-Public Use
  Company Number: US200512001014

PATIENT
  Age: 56 Year
  Sex: Male

DRUGS (4)
  1. FORTEO [Suspect]
     Dosage: UNK
     Route: 065
     Dates: start: 20050601
  2. FORTEO [Concomitant]
  3. FENTANYL [Concomitant]
  4. OXYCONTIN [Concomitant]

REACTIONS (6)
  - ABDOMINAL PAIN LOWER [None]
  - BACK PAIN [None]
  - COLITIS ISCHAEMIC [None]
  - HAEMORRHAGE [None]
  - LARGE INTESTINAL ULCER [None]
  - URINARY TRACT INFECTION [None]
